FAERS Safety Report 13041220 (Version 1)
Quarter: 2016Q4

REPORT INFORMATION
  Report Type: Spontaneous
  Country: US (occurrence: US)
  Receive Date: 20161219
  Receipt Date: 20161219
  Transmission Date: 20170207
  Serious: Yes (Hospitalization)
  Sender: FDA-Public Use
  Company Number: US-ROCHE-1168315

PATIENT
  Age: 57 Year
  Sex: Male

DRUGS (1)
  1. ZELBORAF [Suspect]
     Active Substance: VEMURAFENIB
     Indication: METASTATIC MALIGNANT MELANOMA
     Route: 065
     Dates: start: 201208

REACTIONS (5)
  - Pyrexia [Recovering/Resolving]
  - Myalgia [Recovering/Resolving]
  - Myopathy [Recovering/Resolving]
  - Libido decreased [Recovering/Resolving]
  - Asthenia [Recovering/Resolving]
